FAERS Safety Report 6833517-0 (Version None)
Quarter: 2010Q3

REPORT INFORMATION
  Report Type: 
  Country: None (occurrence: None)
  Receive Date: 20100712
  Receipt Date: 20100629
  Transmission Date: 20110219
  Serious: Yes (Death, Other)
  Sender: FDA-Public Use
  Company Number: IT-GENENTECH-293161

PATIENT
  Sex: Male

DRUGS (13)
  1. MABTHERA [Suspect]
     Indication: MANTLE CELL LYMPHOMA
     Dosage: 375 MG/M2, UNK
     Route: 042
     Dates: start: 20040101, end: 20040201
  2. CYCLOPHOSPHAMIDE [Suspect]
     Indication: MANTLE CELL LYMPHOMA
     Dosage: 750 MG/M2, UNK
     Route: 042
     Dates: start: 20040101, end: 20040201
  3. CYCLOPHOSPHAMIDE [Suspect]
     Route: 042
  4. CYCLOPHOSPHAMIDE [Suspect]
     Dosage: 350 MG/M2, UNK
     Route: 042
     Dates: start: 20040901, end: 20041001
  5. DOXORUBICIN HCL [Suspect]
     Indication: MANTLE CELL LYMPHOMA
     Dosage: 50 MG/M2, UNK
     Route: 042
     Dates: start: 20040101, end: 20040201
  6. VINCRISTINE [Suspect]
     Indication: MANTLE CELL LYMPHOMA
     Dosage: 1.4 MG/M2, UNK
     Dates: start: 20040101, end: 20040201
  7. VINCRISTINE [Suspect]
     Dosage: 2 MG, UNK
     Dates: start: 20040901, end: 20041001
  8. PREDNISONE [Suspect]
     Indication: MANTLE CELL LYMPHOMA
     Dosage: 100 MG, UNK
     Route: 048
     Dates: start: 20040101, end: 20040201
  9. PREDNISONE [Suspect]
     Route: 048
  10. PREDNISONE [Suspect]
     Dosage: 50 MG, UNK
     Route: 048
     Dates: start: 20040901, end: 20041001
  11. DOXORUBICIN HCL [Suspect]
     Indication: MANTLE CELL LYMPHOMA
     Dosage: 30 MG/M2, UNK
     Dates: start: 20040901, end: 20091001
  12. ETOPOSIDE [Suspect]
     Indication: MANTLE CELL LYMPHOMA
     Dosage: 100 MG/M2, UNK
     Route: 042
     Dates: start: 20040901, end: 20041001
  13. BLEOMYCIN SULFATE [Suspect]
     Indication: MANTLE CELL LYMPHOMA
     Dosage: 5 MG/M2, UNK
     Dates: start: 20040901

REACTIONS (5)
  - BACK PAIN [None]
  - CHILLS [None]
  - PARAPLEGIA [None]
  - PROGRESSIVE MULTIFOCAL LEUKOENCEPHALOPATHY [None]
  - PYREXIA [None]
